FAERS Safety Report 5747273-0 (Version None)
Quarter: 2008Q2

REPORT INFORMATION
  Report Type: 
  Country: None (occurrence: None)
  Receive Date: 20080523
  Receipt Date: 20080515
  Transmission Date: 20081010
  Serious: Yes (Life-Threatening, Hospitalization)
  Sender: FDA-Public Use
  Company Number: GB-RANBAXY-2008RR-15257

PATIENT

DRUGS (7)
  1. AMOXICILLIN [Suspect]
  2. CLOZARIL [Suspect]
     Indication: SCHIZOPHRENIA
     Dosage: 1000 MG, UNK
     Route: 048
  3. CLOZARIL [Suspect]
     Dosage: 700 MG, QD
     Route: 048
     Dates: start: 20030623, end: 20060504
  4. HYOSCINE HBR HYT [Suspect]
  5. SERTRALINE HYDROCHLORIDE [Suspect]
  6. MOCLOBEMIDE [Concomitant]
     Indication: DEPRESSION
     Dosage: 600 MG, QD
     Route: 048
  7. SULPIRIDE [Concomitant]
     Indication: SCHIZOPHRENIA
     Dosage: 400 MG, QD
     Route: 048

REACTIONS (5)
  - LIVER FUNCTION TEST ABNORMAL [None]
  - LOSS OF CONSCIOUSNESS [None]
  - OVERDOSE [None]
  - VOMITING [None]
  - WEIGHT DECREASED [None]
